FAERS Safety Report 8553246-5 (Version None)
Quarter: 2012Q3

REPORT INFORMATION
  Report Type: 
  Country: None (occurrence: None)
  Receive Date: 20120731
  Receipt Date: 20120723
  Transmission Date: 20120928
  Serious: Yes (Life-Threatening, Hospitalization, Other)
  Sender: FDA-Public Use
  Company Number: JP-VERTEX PHARMACEUTICALS INC.-AE-2012-006061

PATIENT
  Age: 64 Year
  Sex: Male

DRUGS (28)
  1. KINEDAK [Concomitant]
     Route: 048
     Dates: end: 20120412
  2. REBETOL [Concomitant]
     Indication: HEPATITIS C
     Route: 048
     Dates: start: 20120410, end: 20120412
  3. REBETOL [Concomitant]
     Route: 048
     Dates: start: 20120413, end: 20120416
  4. ADALAT CC [Concomitant]
     Route: 048
     Dates: start: 20120417
  5. TRICHLORMETHIAZIDE [Concomitant]
     Route: 048
     Dates: end: 20120412
  6. AMARYL [Concomitant]
     Route: 048
     Dates: start: 20120424
  7. METFORMIN HCL [Concomitant]
     Route: 048
     Dates: start: 20120424
  8. JUVELA N [Concomitant]
     Route: 048
     Dates: start: 20120424
  9. TRICHLORMETHIAZIDE [Concomitant]
     Route: 048
     Dates: start: 20120424
  10. LYRICA [Concomitant]
     Route: 048
     Dates: start: 20120531, end: 20120614
  11. PEG-INTRON [Concomitant]
     Indication: HEPATITIS C
     Route: 058
     Dates: start: 20120410, end: 20120416
  12. OLMESARTAN MEDOXOMIL [Concomitant]
     Route: 048
     Dates: end: 20120412
  13. NESINA [Concomitant]
     Route: 048
     Dates: end: 20120412
  14. GLYCRON [Concomitant]
     Dates: start: 20120614, end: 20120704
  15. ADALAT CC [Concomitant]
     Route: 048
     Dates: end: 20120412
  16. OLMESARTAN MEDOXOMIL [Concomitant]
     Route: 048
     Dates: start: 20120421
  17. DOXAZOSIN MESYLATE [Concomitant]
     Route: 048
     Dates: end: 20120412
  18. KINEDAK [Concomitant]
     Route: 048
     Dates: start: 20120424
  19. ROHYPNOL [Concomitant]
     Route: 048
     Dates: start: 20120418
  20. URSO 250 [Concomitant]
     Route: 048
     Dates: start: 20120424
  21. DOXAZOSIN MESYLATE [Concomitant]
     Route: 048
     Dates: start: 20120424
  22. NESINA [Concomitant]
     Route: 048
     Dates: start: 20120424
  23. AMARYL [Concomitant]
     Route: 048
     Dates: end: 20120412
  24. METFORMIN HCL [Concomitant]
     Route: 048
     Dates: end: 20120412
  25. LENDORMIN D [Concomitant]
     Route: 048
  26. METHYLCOBAL [Concomitant]
     Route: 048
     Dates: start: 20120424
  27. TELAVIC (TELAPREVIR) [Suspect]
     Indication: HEPATITIS C
     Route: 048
     Dates: start: 20120410, end: 20120416
  28. LOXONIN [Concomitant]
     Route: 048

REACTIONS (5)
  - GENERAL PHYSICAL HEALTH DETERIORATION [None]
  - VOMITING [None]
  - RENAL IMPAIRMENT [None]
  - NAUSEA [None]
  - DIZZINESS [None]
